FAERS Safety Report 12751087 (Version 1)
Quarter: 2016Q3

REPORT INFORMATION
  Report Type: Spontaneous
  Country: US (occurrence: US)
  Receive Date: 20160915
  Receipt Date: 20160915
  Transmission Date: 20161109
  Serious: No
  Sender: FDA-Public Use
  Company Number: US-ASTELLAS-2016US030741

PATIENT
  Sex: Male

DRUGS (2)
  1. XTANDI [Suspect]
     Active Substance: ENZALUTAMIDE
     Indication: PROSTATE CANCER
     Route: 048
     Dates: start: 20160706
  2. XTANDI [Suspect]
     Active Substance: ENZALUTAMIDE
     Indication: BONE CANCER METASTATIC

REACTIONS (8)
  - Tenderness [Unknown]
  - Eating disorder [Unknown]
  - Burning sensation [Unknown]
  - Oedema peripheral [Unknown]
  - Peripheral swelling [Unknown]
  - Weight fluctuation [Unknown]
  - Head discomfort [Unknown]
  - Diarrhoea [Unknown]
